FAERS Safety Report 22770599 (Version 4)
Quarter: 2023Q4

REPORT INFORMATION
  Report Type: Spontaneous
  Country: US (occurrence: US)
  Receive Date: 20230801
  Receipt Date: 20231101
  Transmission Date: 20240109
  Serious: Yes (Other)
  Sender: FDA-Public Use
  Company Number: US-BRISTOL-MYERS SQUIBB COMPANY-2023-106740

PATIENT

DRUGS (3)
  1. ORENCIA [Suspect]
     Active Substance: ABATACEPT
     Indication: Product used for unknown indication
     Dates: start: 20230530
  2. ORENCIA [Suspect]
     Active Substance: ABATACEPT
     Dates: start: 20230613
  3. ORENCIA [Suspect]
     Active Substance: ABATACEPT
     Dates: start: 20230622

REACTIONS (2)
  - Hyperkalaemia [Unknown]
  - Chronic kidney disease [Unknown]

NARRATIVE: CASE EVENT DATE: 20230622
